FAERS Safety Report 24730708 (Version 1)
Quarter: 2024Q4

REPORT INFORMATION
  Report Type: Spontaneous
  Country: US (occurrence: US)
  Receive Date: 20241213
  Receipt Date: 20241213
  Transmission Date: 20250114
  Serious: Yes (Hospitalization)
  Sender: MYLAN
  Company Number: US-MYLANLABS-2024M1111320

PATIENT
  Age: 2 Year
  Sex: Male

DRUGS (5)
  1. MELPHALAN [Suspect]
     Active Substance: MELPHALAN
     Indication: Retinoblastoma
     Dosage: 20 MICROGRAM
     Dates: start: 202212
  2. CISPLATIN [Suspect]
     Active Substance: CISPLATIN
     Indication: Congenital retinoblastoma
     Dosage: UNK
     Route: 065
     Dates: start: 202209
  3. VINCRISTINE [Suspect]
     Active Substance: VINCRISTINE
     Indication: Retinoblastoma
     Dosage: UNK
     Route: 065
     Dates: start: 202209
  4. CYCLOPHOSPHAMIDE [Suspect]
     Active Substance: CYCLOPHOSPHAMIDE
     Indication: Retinoblastoma
     Dosage: UNK
     Route: 065
     Dates: start: 202209
  5. TOPOTECAN [Suspect]
     Active Substance: TOPOTECAN HYDROCHLORIDE
     Indication: Retinoblastoma
     Dosage: 30 MICROGRAM
     Dates: start: 202211

REACTIONS (4)
  - Cytomegalovirus chorioretinitis [Recovered/Resolved]
  - Rhegmatogenous retinal detachment [Unknown]
  - Vitreous haemorrhage [Unknown]
  - Off label use [Unknown]
